FAERS Safety Report 24040875 (Version 2)
Quarter: 2024Q3

REPORT INFORMATION
  Report Type: Report from Study
  Country: US (occurrence: US)
  Receive Date: 20240702
  Receipt Date: 20240819
  Transmission Date: 20241016
  Serious: Yes (Hospitalization, Other)
  Sender: MYLAN
  Company Number: US-MYLANLABS-2024M1061448

PATIENT
  Sex: Male
  Weight: 107.95 kg

DRUGS (6)
  1. CLOZAPINE [Suspect]
     Active Substance: CLOZAPINE
     Indication: Psychotic disorder
     Dosage: 600 MILLIGRAM
     Route: 065
  2. DIVALPROEX SODIUM [Concomitant]
     Active Substance: DIVALPROEX SODIUM
     Dosage: 2000 MILLIGRAM, QD (2000 MG QHS)
     Route: 065
  3. HYDROXYZINE [Concomitant]
     Active Substance: HYDROXYZINE HYDROCHLORIDE
     Dosage: 50 MILLIGRAM, QD (50 MG Q DAY)
     Route: 065
  4. DESMOPRESSIN [Concomitant]
     Active Substance: DESMOPRESSIN
     Dosage: 0.2 MILLIGRAM, QD (0.2 MG QHS)
     Route: 065
  5. SENNA [Concomitant]
     Active Substance: SENNA LEAF\SENNOSIDES\SENNOSIDES A AND B
     Dosage: 8.6 MILLIGRAM, BID (8.6 MG 2 TT BID)
     Route: 065
  6. COLNAR [Concomitant]
     Dosage: 600 MILLIGRAM, QD (600 MG QHS)
     Route: 065

REACTIONS (4)
  - Hypokalaemia [Unknown]
  - Laboratory test abnormal [Unknown]
  - Confusional state [Unknown]
  - Off label use [Unknown]
